FAERS Safety Report 8823347 (Version 1)
Quarter: 2012Q4

REPORT INFORMATION
  Report Type: 
  Country: US (occurrence: US)
  Receive Date: 20121003
  Receipt Date: 20121003
  Transmission Date: 20130627
  Serious: No
  Sender: FDA-Public Use
  Company Number: US-009507513-1210USA000561

PATIENT
  Age: 65 Year
  Sex: Male

DRUGS (3)
  1. JANUVIA [Suspect]
  2. GLIPIZIDE [Suspect]
  3. VICTOZA [Suspect]
     Dosage: 0.6 mg, qd
     Route: 058

REACTIONS (1)
  - Injection site pain [Unknown]
